FAERS Safety Report 10582766 (Version 2)
Quarter: 2014Q4

REPORT INFORMATION
  Report Type: Report from Study
  Country: US (occurrence: US)
  Receive Date: 20141113
  Receipt Date: 20141215
  Transmission Date: 20150529
  Serious: Yes (Hospitalization)
  Sender: FDA-Public Use
  Company Number: US-MYLANLABS-2014M1010408

PATIENT

DRUGS (6)
  1. RITUXIMAB [Suspect]
     Active Substance: RITUXIMAB
     Dosage: 375 MG/M2, DAY2 AND 8 OF CYCLES 2 AND 4
     Route: 042
     Dates: start: 20140525
  2. METHOTREXATE [Suspect]
     Active Substance: METHOTREXATE
     Dosage: 50 MG/M2, OVER TWO HOURS ON DAY 1
     Route: 042
     Dates: start: 20140525
  3. METHOTREXATE [Suspect]
     Active Substance: METHOTREXATE
     Dosage: 200 MG/M2, CONTINUOUS INFUSION OVER 22 HOURS ON DAY 1
     Route: 042
     Dates: start: 20140525
  4. INOTUZUMAB [Suspect]
     Active Substance: INOTUZUMAB OZOGAMICIN
     Dosage: UNK, DAY 2 OR 3 (CYCLES 2 AND 4 ONLY)
     Route: 042
     Dates: start: 20140525
  5. PEGFILGRASTIM [Suspect]
     Active Substance: PEGFILGRASTIM
     Dosage: 6 MG, UNK ON DAY 4
     Route: 058
     Dates: start: 20140525
  6. ARA-C [Suspect]
     Active Substance: CYTARABINE
     Dosage: 0.5 G, G/M2 BID X 4 DOSES ON DAYS 2 AND 3
     Route: 042
     Dates: start: 20140525

REACTIONS (1)
  - Asthenia [Recovered/Resolved]

NARRATIVE: CASE EVENT DATE: 20141028
